FAERS Safety Report 7299196-6 (Version None)
Quarter: 2011Q1

REPORT INFORMATION
  Report Type: 
  Country: None (occurrence: None)
  Receive Date: 20110217
  Receipt Date: 20110209
  Transmission Date: 20110831
  Serious: Yes (Hospitalization)
  Sender: FDA-Public Use
  Company Number: DE-PFIZER INC-2010015396

PATIENT
  Age: 80 Year
  Sex: Female
  Weight: 60 kg

DRUGS (10)
  1. PREDNISOLONE [Interacting]
     Indication: COLITIS ULCERATIVE
     Dosage: 30 MG, 1X/DAY
     Route: 048
     Dates: start: 20080824
  2. METHIZOL [Concomitant]
     Indication: HYPERTHYROIDISM
     Dosage: 5 MG, 1X/DAY
     Route: 048
     Dates: start: 20080824
  3. SALOFALK ^AVENTIS^ [Concomitant]
     Indication: COLITIS ULCERATIVE
     Dosage: 1 G, 3X/DAY
     Route: 048
     Dates: start: 20080824
  4. RAMIPRIL [Concomitant]
     Indication: HYPERTENSION
     Dosage: 5 MG, 1X/DAY
     Route: 048
     Dates: start: 19900101
  5. ROCEPHIN [Interacting]
     Indication: PNEUMONIA
     Dosage: 1 G, 1X/DAY
     Route: 042
     Dates: start: 20080826, end: 20080903
  6. NOVONORM [Concomitant]
     Indication: TYPE 2 DIABETES MELLITUS
     Dosage: UNK
     Dates: start: 20070101
  7. PANTOPRAZOLE [Interacting]
     Indication: PROPHYLAXIS AGAINST GASTROINTESTINAL ULCER
     Dosage: 20 MG, 1X/DAY
     Route: 048
     Dates: start: 20080823
  8. REMINYL [Concomitant]
     Indication: DEMENTIA
     Dosage: 16 MG, 1X/DAY
     Route: 048
     Dates: start: 20070101
  9. ACETYLSALICYLIC ACID [Concomitant]
     Indication: ISCHAEMIC HEART DISEASE PROPHYLAXIS
     Route: 048
  10. METRONIDAZOLE [Suspect]
     Indication: PNEUMONIA
     Dosage: 500 MG, 3X/DAY
     Route: 042
     Dates: start: 20080826, end: 20080903

REACTIONS (2)
  - CLOSTRIDIUM DIFFICILE COLITIS [None]
  - DRUG INTERACTION [None]
